FAERS Safety Report 22146084 (Version 3)
Quarter: 2023Q2

REPORT INFORMATION
  Report Type: Report from Study
  Country: US (occurrence: US)
  Receive Date: 20230328
  Receipt Date: 20230407
  Transmission Date: 20230721
  Serious: No
  Sender: FDA-Public Use
  Company Number: US-002147023-NVSC2023US069328

PATIENT
  Sex: Female

DRUGS (4)
  1. TRIAMCINOLONE [Suspect]
     Active Substance: TRIAMCINOLONE
     Indication: Psoriatic arthropathy
     Dosage: UNK
     Route: 065
  2. TRIAMCINOLONE [Suspect]
     Active Substance: TRIAMCINOLONE
     Indication: Psoriasis
  3. VITAMIN D NOS [Suspect]
     Active Substance: VITAMIN D NOS
     Indication: Psoriatic arthropathy
     Dosage: UNK
     Route: 065
  4. VITAMIN D NOS [Suspect]
     Active Substance: VITAMIN D NOS
     Indication: Psoriasis

REACTIONS (6)
  - Skin exfoliation [Unknown]
  - Skin plaque [Unknown]
  - Contusion [Unknown]
  - Papule [Unknown]
  - Pruritus [Unknown]
  - Drug ineffective [Unknown]
